FAERS Safety Report 13555494 (Version 5)
Quarter: 2018Q3

REPORT INFORMATION
  Report Type: Report from Study
  Country: US (occurrence: US)
  Receive Date: 20170517
  Receipt Date: 20180910
  Transmission Date: 20181010
  Serious: Yes (Death, Hospitalization, Other)
  Sender: FDA-Public Use
  Company Number: US-ROCHE-1930824

PATIENT
  Age: 65 Year
  Sex: Female
  Weight: 54 kg

DRUGS (43)
  1. VENETOCLAX. [Suspect]
     Active Substance: VENETOCLAX
     Indication: ACUTE MYELOID LEUKAEMIA
     Dosage: MOST RECENT DOSE OF 800 MG VENETOCLAX PRIOR TO WORSENING OF DIARRHEA ONSET 01/MAY/2017?MOST RECENT D
     Route: 048
     Dates: start: 20170427
  2. LINEZOLID. [Suspect]
     Active Substance: LINEZOLID
     Route: 048
     Dates: start: 20170504, end: 20170509
  3. METRONIDAZOLE. [Suspect]
     Active Substance: METRONIDAZOLE
     Indication: LUNG INFECTION
     Route: 065
  4. FLUTICASONE PROPIONATE. [Concomitant]
     Active Substance: FLUTICASONE PROPIONATE
     Indication: SEASONAL ALLERGY
     Route: 045
     Dates: start: 20170421, end: 20170510
  5. MAGNESIUM OXIDE. [Concomitant]
     Active Substance: MAGNESIUM OXIDE
     Indication: HYPOMAGNESAEMIA
     Route: 048
     Dates: start: 20170423, end: 20170429
  6. CHLORHEXIDINE [Concomitant]
     Active Substance: CHLORHEXIDINE
     Indication: PROPHYLAXIS
     Route: 048
     Dates: start: 20170424, end: 20170510
  7. COBIMETINIB. [Suspect]
     Active Substance: COBIMETINIB
     Indication: ACUTE MYELOID LEUKAEMIA
     Dosage: MOST RECENT DOSE OF 40 MG COBIMETINIB PRIOR TO WORSENING OF DIARRHEA ONSET 01/MAY/2017?MOST RECENT D
     Route: 048
     Dates: start: 20170427, end: 20170504
  8. ACYCLOVIR. [Concomitant]
     Active Substance: ACYCLOVIR
     Indication: INFECTION PROPHYLAXIS
     Route: 048
     Dates: end: 20170510
  9. ACETAMINOPHEN. [Concomitant]
     Active Substance: ACETAMINOPHEN
     Indication: PREMEDICATION
  10. PROCHLORPERAZINE. [Concomitant]
     Active Substance: PROCHLORPERAZINE
     Indication: NAUSEA
     Route: 054
     Dates: start: 20170513, end: 20170513
  11. LINEZOLID. [Suspect]
     Active Substance: LINEZOLID
     Indication: LUNG INFECTION
     Route: 042
     Dates: start: 20170503, end: 20170504
  12. ALLOPURINOL. [Concomitant]
     Active Substance: ALLOPURINOL
     Indication: PROPHYLAXIS
     Route: 048
     Dates: start: 20170420, end: 20170509
  13. ZINC SULFATE [Concomitant]
     Active Substance: ZINC SULFATE\ZINC SULFATE ANHYDROUS
     Route: 048
     Dates: start: 20170427, end: 20170509
  14. MICAFUNGIN [Concomitant]
     Active Substance: MICAFUNGIN
     Route: 042
     Dates: start: 20170514, end: 20170514
  15. ACETAMINOPHEN. [Concomitant]
     Active Substance: ACETAMINOPHEN
     Indication: PROPHYLAXIS
  16. ERGOCALCIFEROL. [Concomitant]
     Active Substance: ERGOCALCIFEROL
     Indication: PROPHYLAXIS
     Dosage: 50000 U
     Route: 048
     Dates: start: 20170424, end: 20170508
  17. OXYCODONE [Concomitant]
     Active Substance: OXYCODONE
     Indication: BACK PAIN
     Route: 048
     Dates: start: 20170501, end: 20170501
  18. LOPERAMIDE [Concomitant]
     Active Substance: LOPERAMIDE
     Indication: DIARRHOEA
     Route: 048
     Dates: start: 20170427, end: 20170512
  19. ACETYLCYSTEINE. [Concomitant]
     Active Substance: ACETYLCYSTEINE
     Indication: HEPATIC FAILURE
     Route: 042
     Dates: start: 20170514, end: 20170514
  20. CALCIUM GLUCONATE. [Concomitant]
     Active Substance: CALCIUM GLUCONATE
     Indication: HEPATIC FAILURE
     Route: 042
     Dates: start: 20170514, end: 20170514
  21. COBIMETINIB. [Suspect]
     Active Substance: COBIMETINIB
     Dosage: MOST RECENT DOSE (20 MG) ON 12/MAY/2017 PRIOR TO HEPATIC FAILURE
     Route: 048
     Dates: start: 20170505
  22. ACETAMINOPHEN. [Concomitant]
     Active Substance: ACETAMINOPHEN
     Indication: BACK PAIN
     Route: 048
     Dates: end: 20170512
  23. DOCUSATE SODIUM. [Concomitant]
     Active Substance: DOCUSATE SODIUM
     Indication: CONSTIPATION
     Route: 048
     Dates: start: 20170424, end: 20170429
  24. LINEZOLID. [Suspect]
     Active Substance: LINEZOLID
     Route: 042
     Dates: start: 20170507, end: 20170509
  25. ERTAPENEM. [Concomitant]
     Active Substance: ERTAPENEM SODIUM
     Indication: PROPHYLAXIS
     Route: 042
     Dates: start: 20170429, end: 20170429
  26. FOLIC ACID. [Concomitant]
     Active Substance: FOLIC ACID
     Indication: ANAEMIA
     Route: 048
     Dates: start: 20170420, end: 20170512
  27. FUROSEMIDE. [Concomitant]
     Active Substance: FUROSEMIDE
     Indication: PREMEDICATION
     Route: 042
     Dates: start: 20170428, end: 20170429
  28. ONDANSETRON [Concomitant]
     Active Substance: ONDANSETRON
     Indication: NAUSEA
     Route: 042
     Dates: start: 20170427, end: 20170427
  29. ONDANSETRON [Concomitant]
     Active Substance: ONDANSETRON
     Indication: VOMITING
     Route: 042
     Dates: start: 20170420, end: 20170512
  30. MICAFUNGIN [Concomitant]
     Active Substance: MICAFUNGIN
     Indication: PROPHYLAXIS
     Route: 042
     Dates: start: 20170420, end: 20170504
  31. LORAZEPAM. [Concomitant]
     Active Substance: LORAZEPAM
     Dosage: COMFORT MEASURES
     Route: 042
     Dates: start: 20170514, end: 20170514
  32. NOREPINEPHRINE. [Concomitant]
     Active Substance: NOREPINEPHRINE
     Indication: HYPOTENSION
     Route: 042
     Dates: start: 20170514, end: 20170514
  33. CIPROFLOXACIN. [Suspect]
     Active Substance: CIPROFLOXACIN
     Indication: LUNG INFECTION
     Route: 048
     Dates: start: 20170505, end: 20170512
  34. OMEPRAZOLE. [Concomitant]
     Active Substance: OMEPRAZOLE
     Indication: GASTROOESOPHAGEAL REFLUX DISEASE
     Route: 048
     Dates: end: 20170512
  35. MICAFUNGIN [Concomitant]
     Active Substance: MICAFUNGIN
     Indication: LUNG INFECTION
     Route: 042
     Dates: start: 20170507, end: 20170507
  36. DEXTROSE. [Concomitant]
     Active Substance: DEXTROSE
     Indication: HEPATIC FAILURE
     Route: 042
     Dates: start: 20170514, end: 20170514
  37. LINEZOLID. [Suspect]
     Active Substance: LINEZOLID
     Route: 042
     Dates: start: 20170514, end: 20170514
  38. FLUOXETINE [Concomitant]
     Active Substance: FLUOXETINE HYDROCHLORIDE
     Indication: DEPRESSION
     Route: 048
     Dates: start: 20170512
  39. IMODIUM [Concomitant]
     Active Substance: LOPERAMIDE HYDROCHLORIDE
     Indication: DIARRHOEA
     Route: 048
     Dates: start: 20170427
  40. MAGNESIUM SULFATE. [Concomitant]
     Active Substance: MAGNESIUM SULFATE
     Indication: HYPOMAGNESAEMIA
     Route: 048
     Dates: start: 20170423, end: 20170430
  41. POTASSIUM CHLORIDE. [Concomitant]
     Active Substance: POTASSIUM CHLORIDE
     Indication: HYPOKALAEMIA
     Dosage: 20 OTHER
     Route: 042
     Dates: start: 20170427, end: 20170501
  42. VANCOMYCIN [Concomitant]
     Active Substance: VANCOMYCIN
     Indication: PROPHYLAXIS
     Route: 042
     Dates: start: 20170427, end: 20170503
  43. MORPHINE [Concomitant]
     Active Substance: MORPHINE
     Dosage: COMFORT MEASURES
     Route: 042
     Dates: start: 20170514, end: 20170514

REACTIONS (3)
  - Lung infection [Not Recovered/Not Resolved]
  - Diarrhoea [Recovered/Resolved]
  - Pneumonia necrotising [Fatal]

NARRATIVE: CASE EVENT DATE: 20170501
